FAERS Safety Report 8808384 (Version 1)
Quarter: 2012Q4

REPORT INFORMATION
  Report Type: Spontaneous
  Country: US (occurrence: None)
  Receive Date: 20120920
  Receipt Date: 20120920
  Transmission Date: 20130627
  Serious: Yes (Death)
  Sender: FDA-Public Use
  Company Number: DSA_59646_2012

PATIENT
  Age: 76 Year
  Sex: Male

DRUGS (1)
  1. XENAZINE 25 MG (NOT SPECIFIED) [Suspect]
     Route: 048
     Dates: start: 20110511, end: 20120913

REACTIONS (2)
  - Aspiration [None]
  - Coma [None]
